FAERS Safety Report 4707090-7 (Version None)
Quarter: 2005Q3

REPORT INFORMATION
  Report Type: 
  Country: None (occurrence: None)
  Receive Date: 20050706
  Receipt Date: 20020917
  Transmission Date: 20060218
  Serious: Yes (Hospitalization)
  Sender: FDA-Public Use
  Company Number: PHHO2002ES06913

PATIENT
  Age: 40 Year
  Sex: Female

DRUGS (10)
  1. RAD [Suspect]
     Indication: RENAL TRANSPLANT
     Dosage: .75 MG, BID
     Route: 048
     Dates: start: 20020307
  2. RAD [Suspect]
     Dosage: 3.0 MG / DAY
     Route: 048
  3. RAD [Suspect]
     Dosage: 2.5 MG / DAY
     Route: 048
  4. RAD [Suspect]
     Dosage: 1.5 MG / DAY
     Route: 048
  5. RAD [Suspect]
     Dosage: 1.0 MG / DAY
     Route: 048
  6. NEORAL [Suspect]
     Indication: RENAL TRANSPLANT
     Dosage: 4 MG/KG, Q12H
     Route: 048
  7. NEORAL [Suspect]
     Dosage: 7 MG/KG / DAY
     Route: 048
  8. NEORAL [Suspect]
     Dosage: 4 MG/KG / DAY
     Route: 048
  9. NEORAL [Suspect]
     Dosage: DOSE REDUCED BY 2.0 MG/KG
     Route: 048
  10. CORTICOSTEROIDS [Concomitant]
     Indication: RENAL TRANSPLANT
     Dosage: NOT REPORTED
     Route: 048

REACTIONS (8)
  - BLOOD CREATININE INCREASED [None]
  - EYELID OEDEMA [None]
  - HYDRONEPHROSIS [None]
  - HYPERLIPIDAEMIA [None]
  - LYMPHOCELE [None]
  - NEPHROPATHY TOXIC [None]
  - RENAL IMPAIRMENT [None]
  - URETERIC OBSTRUCTION [None]
